FAERS Safety Report 7318822-6 (Version None)
Quarter: 2011Q1

REPORT INFORMATION
  Report Type: 
  Country: None (occurrence: None)
  Receive Date: 20110228
  Receipt Date: 20100721
  Transmission Date: 20110831
  Serious: No
  Sender: FDA-Public Use
  Company Number: A0873556A

PATIENT
  Sex: Female

DRUGS (3)
  1. EXCEDRIN (MIGRAINE) [Concomitant]
  2. IMITREX [Suspect]
     Indication: MIGRAINE
     Route: 065
  3. EXCEDRIN (MIGRAINE) [Concomitant]

REACTIONS (1)
  - MIGRAINE [None]
